FAERS Safety Report 6274653-X (Version None)
Quarter: 2009Q3

REPORT INFORMATION
  Report Type: 
  Country: None (occurrence: None)
  Receive Date: 20090717
  Receipt Date: 20090706
  Transmission Date: 20100115
  Serious: No
  Sender: FDA-Public Use
  Company Number: 2009008190

PATIENT
  Sex: Female
  Weight: 56.6996 kg

DRUGS (2)
  1. FENTORA [Suspect]
     Indication: BACK PAIN
     Dosage: 600 MCG, BUCCAL
     Route: 002
  2. PERCOCET (PARACETAMOL, OXYCODONE HYDROCHLORIDE, OXYCODOINE TEREPHTHALA [Concomitant]

REACTIONS (1)
  - DRUG PRESCRIBING ERROR [None]
